FAERS Safety Report 5370361-8 (Version None)
Quarter: 2007Q2

REPORT INFORMATION
  Report Type: 
  Country: None (occurrence: None)
  Receive Date: 20070626
  Receipt Date: 20070618
  Transmission Date: 20071010
  Serious: Yes (Hospitalization)
  Sender: FDA-Public Use
  Company Number: JP-ROCHE-502119

PATIENT
  Age: 70 Year
  Sex: Female
  Weight: 46.8 kg

DRUGS (11)
  1. CAPECITABINE [Suspect]
     Indication: GASTRIC CANCER
     Dosage: FREQUENCY REPORTED AS D1 - 14 EVERY 3 WEEKS
     Route: 048
     Dates: start: 20070109, end: 20070401
  2. CISPLATIN [Suspect]
     Indication: GASTRIC CANCER
     Route: 042
     Dates: start: 20070109, end: 20070401
  3. FERRIC OXIDE, SACCHARATED [Concomitant]
  4. FAMOTIDINE [Concomitant]
  5. FERROUS CITRATE [Concomitant]
  6. PANTETHINE [Concomitant]
  7. MAGNESIUM OXIDE [Concomitant]
  8. DOMPERIDONE [Concomitant]
  9. FLURBIPROFEN AXETIL [Concomitant]
     Dates: start: 20070331, end: 20070402
  10. METOCLOPRAMIDE HYDROCHLORIDE [Concomitant]
     Dosage: TDD : 5 - 10 MG
     Dates: start: 20070110
  11. 1 CONCOMITANT DRUG [Concomitant]
     Dosage: DRUG REPORTED AS UREA
     Dates: start: 20070328

REACTIONS (1)
  - CHOLECYSTITIS [None]
